FAERS Safety Report 4515929-3 (Version None)
Quarter: 2004Q4

REPORT INFORMATION
  Report Type: 
  Country: None (occurrence: None)
  Receive Date: 20041129
  Receipt Date: 20041129
  Transmission Date: 20050328
  Serious: Yes (Hospitalization, Other)
  Sender: FDA-Public Use
  Company Number: None

PATIENT
  Age: 48 Year
  Sex: Male
  Weight: 48 kg

DRUGS (2)
  1. ZITHROMAX [Suspect]
     Indication: ANTIBACTERIAL PROPHYLAXIS
     Dosage: 1200 MG PO QD
     Route: 048
     Dates: start: 20041118, end: 20041124
  2. ZITHROMAX [Suspect]
     Indication: MYCOBACTERIUM AVIUM COMPLEX INFECTION
     Dosage: 1200 MG PO QD
     Route: 048
     Dates: start: 20041118, end: 20041124

REACTIONS (3)
  - BLOOD URINE PRESENT [None]
  - INAPPROPRIATE ANTIDIURETIC HORMONE SECRETION [None]
  - MEDICATION ERROR [None]
